FAERS Safety Report 24760435 (Version 1)
Quarter: 2024Q4

REPORT INFORMATION
  Report Type: Report from Study
  Country: US (occurrence: US)
  Receive Date: 20241220
  Receipt Date: 20241220
  Transmission Date: 20250114
  Serious: Yes (Hospitalization)
  Sender: BAYER HEALTHCARE PHARMACEUTICALS INC.
  Company Number: US-BAYER-2024A178115

PATIENT
  Age: 74 Year
  Sex: Male

DRUGS (2)
  1. NUBEQA [Suspect]
     Active Substance: DAROLUTAMIDE
     Indication: Prostate cancer
     Dosage: 600 MG, BID
     Route: 048
     Dates: end: 20241117
  2. NUBEQA [Suspect]
     Active Substance: DAROLUTAMIDE
     Indication: Prostate cancer
     Dosage: UNK
     Route: 048

REACTIONS (2)
  - Gastrointestinal disorder [Not Recovered/Not Resolved]
  - Dyspepsia [Not Recovered/Not Resolved]
